FAERS Safety Report 9013404 (Version 1)
Quarter: 2013Q1

REPORT INFORMATION
  Report Type: Spontaneous
  Country: US (occurrence: US)
  Receive Date: 20130114
  Receipt Date: 20130114
  Transmission Date: 20140127
  Serious: Yes (Other)
  Sender: FDA-Public Use
  Company Number: US-PFIZER INC-2013015031

PATIENT
  Sex: Female

DRUGS (1)
  1. LYRICA [Suspect]
     Indication: NEURALGIA
     Dosage: UNK
     Dates: end: 2005

REACTIONS (5)
  - Spinal fracture [Unknown]
  - Fall [Unknown]
  - Pain in extremity [Unknown]
  - Temperature difference of extremities [Unknown]
  - Weight increased [Unknown]
